FAERS Safety Report 4503901-9 (Version None)
Quarter: 2004Q4

REPORT INFORMATION
  Report Type: 
  Country: None (occurrence: None)
  Receive Date: 20041115
  Receipt Date: 20041101
  Transmission Date: 20050328
  Serious: Yes (Other)
  Sender: FDA-Public Use
  Company Number: 2004088888

PATIENT
  Age: 57 Year
  Sex: Male
  Weight: 72.5755 kg

DRUGS (1)
  1. LIPITOR [Suspect]
     Indication: BLOOD CHOLESTEROL INCREASED
     Dosage: 80 MG (80 MG, 1 IN 1 D), ORAL
     Route: 048
     Dates: start: 20040908, end: 20040912

REACTIONS (6)
  - ALDOLASE INCREASED [None]
  - ASTHENIA [None]
  - CHROMATURIA [None]
  - FATIGUE [None]
  - MYALGIA [None]
  - MYOGLOBIN URINE PRESENT [None]
